FAERS Safety Report 17547115 (Version 3)
Quarter: 2020Q2

REPORT INFORMATION
  Report Type: Spontaneous
  Country: US (occurrence: US)
  Receive Date: 20200316
  Receipt Date: 20200512
  Transmission Date: 20200713
  Serious: Yes (Hospitalization)
  Sender: FDA-Public Use
  Company Number: US-ACTELION-A-NJ2020-203013

PATIENT
  Age: 59 Year
  Sex: Female
  Weight: 129.25 kg

DRUGS (4)
  1. OPSUMIT [Suspect]
     Active Substance: MACITENTAN
     Indication: PULMONARY ARTERIAL HYPERTENSION
     Dosage: 10 MG, QD
     Route: 048
  2. UPTRAVI [Suspect]
     Active Substance: SELEXIPAG
     Indication: PULMONARY ARTERIAL HYPERTENSION
     Dosage: 1600 MCG, BID
     Route: 048
     Dates: end: 202003
  3. ADCIRCA [Concomitant]
     Active Substance: TADALAFIL
  4. TREPROSTINIL. [Concomitant]
     Active Substance: TREPROSTINIL
     Dosage: 9 NG/KG, PER MIN

REACTIONS (5)
  - Somnolence [Unknown]
  - Therapy change [Unknown]
  - Nausea [Unknown]
  - Hospitalisation [Unknown]
  - Headache [Unknown]

NARRATIVE: CASE EVENT DATE: 20200306
